FAERS Safety Report 20624001 (Version 1)
Quarter: 2022Q1

REPORT INFORMATION
  Report Type: Spontaneous
  Country: US (occurrence: US)
  Receive Date: 20220322
  Receipt Date: 20220322
  Transmission Date: 20220423
  Serious: No
  Sender: FDA-Public Use
  Company Number: US-ALLERGAN-2113283US

PATIENT
  Age: 4 Decade
  Sex: Female

DRUGS (3)
  1. LATISSE [Suspect]
     Active Substance: BIMATOPROST
     Indication: Growth of eyelashes
     Dosage: 2 GTT, QPM
     Route: 061
     Dates: start: 202101, end: 202102
  2. ADAPALENE [Concomitant]
     Active Substance: ADAPALENE
     Indication: Acne
  3. CLINDAMYCIN [Concomitant]
     Active Substance: CLINDAMYCIN
     Indication: Acne

REACTIONS (2)
  - Skin irritation [Recovered/Resolved]
  - Drug intolerance [Unknown]
